FAERS Safety Report 7965903-X (Version None)
Quarter: 2011Q4

REPORT INFORMATION
  Report Type: 
  Country: None (occurrence: None)
  Receive Date: 20111208
  Receipt Date: 20111129
  Transmission Date: 20120403
  Serious: Yes (Hospitalization)
  Sender: FDA-Public Use
  Company Number: JP-GLAXOSMITHKLINE-B0730484A

PATIENT
  Sex: Female
  Weight: 46 kg

DRUGS (5)
  1. OMEPRAZOLE [Concomitant]
     Dosage: 20MG PER DAY
     Route: 048
  2. ALENDRONATE SODIUM [Concomitant]
     Dosage: 35MG PER DAY
     Route: 048
  3. AMLODIPINE [Concomitant]
     Indication: HYPERTENSION
     Dosage: 5MG PER DAY
     Route: 048
  4. PROMACTA [Suspect]
     Indication: IDIOPATHIC THROMBOCYTOPENIC PURPURA
     Dosage: 12.5MG PER DAY
     Route: 048
     Dates: start: 20110517, end: 20110701
  5. PREDNISOLONE [Concomitant]
     Indication: IDIOPATHIC THROMBOCYTOPENIC PURPURA
     Dosage: 40MG PER DAY
     Route: 048

REACTIONS (2)
  - PULMONARY EMBOLISM [None]
  - ARTERIAL THROMBOSIS LIMB [None]
